FAERS Safety Report 14178418 (Version 5)
Quarter: 2023Q1

REPORT INFORMATION
  Report Type: Report from Study
  Country: US (occurrence: US)
  Receive Date: 20171111
  Receipt Date: 20230317
  Transmission Date: 20230417
  Serious: Yes (Hospitalization, Other)
  Sender: FDA-Public Use
  Company Number: US-ACADIA PHARMACEUTICALS INC.-ACA-2017-005566

PATIENT
  Age: 81 Year
  Sex: Female

DRUGS (24)
  1. NUPLAZID [Suspect]
     Active Substance: PIMAVANSERIN TARTRATE
     Indication: Parkinson^s disease psychosis
     Dosage: 34 MILLIGRAM, QD
     Route: 065
     Dates: start: 20191019
  2. NUPLAZID [Suspect]
     Active Substance: PIMAVANSERIN TARTRATE
     Dosage: 34 MILLIGRAM, QD
     Route: 048
     Dates: start: 20220106
  3. NUPLAZID [Suspect]
     Active Substance: PIMAVANSERIN TARTRATE
     Indication: Parkinson^s disease
     Dosage: 34 MG, QD
     Route: 048
     Dates: start: 20161230
  4. XALATAN [Concomitant]
     Active Substance: LATANOPROST
     Route: 065
  5. PREVIDENT [Concomitant]
     Active Substance: SODIUM FLUORIDE
  6. PREVACID [Concomitant]
     Active Substance: LANSOPRAZOLE
  7. SUCRALFATE [Concomitant]
     Active Substance: SUCRALFATE
  8. Equate [Concomitant]
  9. BYSTOLIC [Concomitant]
     Active Substance: NEBIVOLOL HYDROCHLORIDE
  10. FLONASE [Concomitant]
     Active Substance: FLUTICASONE PROPIONATE
  11. JANUVIA [Concomitant]
     Active Substance: SITAGLIPTIN PHOSPHATE
  12. ZOCOR [Concomitant]
     Active Substance: SIMVASTATIN
  13. Cerefolin NAC [Concomitant]
  14. ASPIRIN [Concomitant]
     Active Substance: ASPIRIN
  15. LEVOTHYROXINE [Concomitant]
     Active Substance: LEVOTHYROXINE
  16. ABILIFY [Concomitant]
     Active Substance: ARIPIPRAZOLE
  17. EDARBI CLO [Concomitant]
  18. FISH OIL [Concomitant]
     Active Substance: FISH OIL
  19. PROBIOTICS NOS [Concomitant]
     Active Substance: PROBIOTICS NOS
  20. ADVAIR HFA [Concomitant]
     Active Substance: FLUTICASONE PROPIONATE\SALMETEROL XINAFOATE
  21. AMBIEN CR [Concomitant]
     Active Substance: ZOLPIDEM TARTRATE
     Route: 065
  22. PRAMIPEXOLE DIHYDROCHLORIDE [Concomitant]
     Active Substance: PRAMIPEXOLE DIHYDROCHLORIDE
  23. CARBIDOPA AND LEVODOPA [Concomitant]
     Active Substance: CARBIDOPA\LEVODOPA
  24. SIMVASTATIN [Concomitant]
     Active Substance: SIMVASTATIN

REACTIONS (9)
  - Pneumonia bacterial [Not Recovered/Not Resolved]
  - Dysphagia [Not Recovered/Not Resolved]
  - Intestinal obstruction [Not Recovered/Not Resolved]
  - General physical health deterioration [Unknown]
  - Paranoia [Unknown]
  - Bipolar disorder [Unknown]
  - Schizophrenia [Unknown]
  - Dizziness [Unknown]
  - Hallucination, visual [Unknown]

NARRATIVE: CASE EVENT DATE: 20221222
